FAERS Safety Report 9202484 (Version 1)
Quarter: 2013Q1

REPORT INFORMATION
  Report Type: Spontaneous
  Country: US (occurrence: None)
  Receive Date: 20130329
  Receipt Date: 20130329
  Transmission Date: 20140127
  Serious: No
  Sender: FDA-Public Use
  Company Number: None

PATIENT
  Age: 53 Year
  Sex: Female
  Weight: 65.77 kg

DRUGS (1)
  1. LORAZEPAM 1 MG [Suspect]
     Dosage: TAKE 1 TAB AT BEDTIME X1
     Dates: start: 20121112, end: 20130208

REACTIONS (4)
  - Anxiety [None]
  - Emotional disorder [None]
  - Depressed mood [None]
  - Condition aggravated [None]
